FAERS Safety Report 8595759-6 (Version None)
Quarter: 2012Q3

REPORT INFORMATION
  Report Type: 
  Country: None (occurrence: None)
  Receive Date: 20120815
  Receipt Date: 20120807
  Transmission Date: 20120928
  Serious: Yes (Hospitalization, Other)
  Sender: FDA-Public Use
  Company Number: FR-ELI_LILLY_AND_COMPANY-FR201206000180

PATIENT
  Age: 64 Year
  Sex: Male
  Weight: 80 kg

DRUGS (4)
  1. EFFIENT [Suspect]
     Dosage: 10 MG, UNKNOWN
     Dates: start: 20120523, end: 20120525
  2. ASPIRIN [Concomitant]
     Indication: PROPHYLAXIS
     Dosage: 160 MG, UNK
  3. PLAVIX [Concomitant]
     Indication: ACUTE CORONARY SYNDROME
  4. EFFIENT [Suspect]
     Indication: ACUTE CORONARY SYNDROME
     Dosage: 60 MG, SINGLE
     Route: 048
     Dates: start: 20120522, end: 20120522

REACTIONS (7)
  - LEUKOPENIA [None]
  - HYPERSENSITIVITY [None]
  - THROMBOCYTOPENIA [None]
  - NEUTROPENIA [None]
  - ATELECTASIS [None]
  - PYREXIA [None]
  - HIATUS HERNIA [None]
